FAERS Safety Report 18556049 (Version 1)
Quarter: 2020Q4

REPORT INFORMATION
  Report Type: Spontaneous
  Country: GB (occurrence: GB)
  Receive Date: 20201127
  Receipt Date: 20201127
  Transmission Date: 20210114
  Serious: Yes (Hospitalization)
  Sender: FDA-Public Use
  Company Number: GB-009507513-2011GBR015284

PATIENT
  Age: 82 Year
  Sex: Male

DRUGS (1)
  1. LISINOPRIL. [Suspect]
     Active Substance: LISINOPRIL
     Indication: HYPERTENSION
     Dosage: 5 MG, QD
     Route: 048

REACTIONS (4)
  - Angioedema [Not Recovered/Not Resolved]
  - Respiratory failure [Not Recovered/Not Resolved]
  - Swollen tongue [Not Recovered/Not Resolved]
  - Obstructive airways disorder [Not Recovered/Not Resolved]
